FAERS Safety Report 21189681 (Version 1)
Quarter: 2022Q3

REPORT INFORMATION
  Report Type: Spontaneous
  Country: US (occurrence: None)
  Receive Date: 20220808
  Receipt Date: 20220808
  Transmission Date: 20221026
  Serious: Yes (Life-Threatening, Other)
  Sender: FDA-Public Use
  Company Number: None

PATIENT
  Age: 43 Year
  Sex: Female
  Weight: 52.65 kg

DRUGS (13)
  1. LIDOCAINE VISCOUS [Suspect]
     Active Substance: LIDOCAINE HYDROCHLORIDE
     Indication: Abdominal pain upper
     Dosage: OTHER QUANTITY : 1 10 ML SYRINGE;?FREQUENCY : 3 TIMES A DAY;?
     Route: 048
     Dates: start: 20220805, end: 20220806
  2. Rhopressa eye drop [Concomitant]
  3. latanaprost eye drop [Concomitant]
  4. TRAZODONE [Concomitant]
     Active Substance: TRAZODONE HYDROCHLORIDE
  5. ALBUTEROL [Concomitant]
     Active Substance: ALBUTEROL
  6. BENADRYL [Concomitant]
     Active Substance: DIPHENHYDRAMINE HYDROCHLORIDE
  7. Renew sleep supplement [Concomitant]
  8. VITAMIN D3 [Concomitant]
     Active Substance: CHOLECALCIFEROL
  9. IRON [Concomitant]
     Active Substance: IRON
  10. ZINC [Concomitant]
     Active Substance: ZINC
  11. Digest gold supplement by enzymedica [Concomitant]
  12. DIETARY SUPPLEMENT [Concomitant]
     Active Substance: DIETARY SUPPLEMENT
  13. Marshmallow root powder [Concomitant]

REACTIONS (14)
  - Dizziness [None]
  - Dizziness [None]
  - Stress [None]
  - Fatigue [None]
  - Chest pain [None]
  - Blood pressure increased [None]
  - Dysarthria [None]
  - Movement disorder [None]
  - Rash [None]
  - Depressed level of consciousness [None]
  - Obstructive airways disorder [None]
  - Facial paralysis [None]
  - Paralysis [None]
  - Drug hypersensitivity [None]

NARRATIVE: CASE EVENT DATE: 20220806
